FAERS Safety Report 7141025-5 (Version None)
Quarter: 2010Q4

REPORT INFORMATION
  Report Type: 
  Country: None (occurrence: None)
  Receive Date: 20101201
  Receipt Date: 20101201
  Transmission Date: 20110411
  Serious: Yes (Death, Hospitalization)
  Sender: FDA-Public Use
  Company Number: None

PATIENT
  Sex: Female
  Weight: 50.7 kg

DRUGS (10)
  1. CYCLOPHOSPHAMIDE [Suspect]
     Dosage: 1430 MG
     Dates: end: 20100415
  2. CYTARABINE [Suspect]
     Dosage: 70 MG
     Dates: end: 20100224
  3. DAUNORUBICIN [Suspect]
     Dosage: 150 MG
     Dates: end: 20100224
  4. DEXAMETHASONE [Suspect]
     Dosage: 14 MG
     Dates: end: 20100929
  5. DOXORUBICIN HCL [Suspect]
     Dosage: 34.25 MG
     Dates: end: 20100923
  6. METHOTREXATE [Suspect]
     Dosage: 30 MG
     Dates: end: 20100324
  7. PEG-L-ASPARAGINASE (K-H) [Suspect]
     Dosage: 3750 IU
     Dates: end: 20100227
  8. PREDNISONE [Suspect]
     Dosage: 2520 MG
     Dates: end: 20100323
  9. THIOGUANINE [Suspect]
     Dosage: 80 MG
     Dates: end: 20101027
  10. VINCRISTINE SULFATE [Suspect]
     Dosage: 8 MG
     Dates: end: 20100317

REACTIONS (8)
  - ASPERGILLOSIS [None]
  - CHOLECYSTITIS [None]
  - FEBRILE NEUTROPENIA [None]
  - FUNGAL SEPSIS [None]
  - GENERAL PHYSICAL HEALTH DETERIORATION [None]
  - HYPERBILIRUBINAEMIA [None]
  - MULTI-ORGAN FAILURE [None]
  - PANCREATITIS [None]
